FAERS Safety Report 9752331 (Version 1)
Quarter: 2013Q4

REPORT INFORMATION
  Report Type: Spontaneous
  Country: IT (occurrence: None)
  Receive Date: 20131211
  Receipt Date: 20131211
  Transmission Date: 20140711
  Serious: Yes (Other)
  Sender: FDA-Public Use
  Company Number: AUR-APL-2013-10217

PATIENT
  Age: 39 Year
  Sex: Male

DRUGS (1)
  1. AMOXICILLIN ( AMOXICILLIN) [Suspect]
     Indication: NASOPHARYNGITIS
     Dosage: TOTAL
     Route: 048
     Dates: start: 20131126, end: 20131126

REACTIONS (2)
  - Pruritus [None]
  - Generalised erythema [None]
